FAERS Safety Report 16015841 (Version 1)
Quarter: 2019Q1

REPORT INFORMATION
  Report Type: Spontaneous
  Country: DE (occurrence: BE)
  Receive Date: 20190228
  Receipt Date: 20190228
  Transmission Date: 20190418
  Serious: Yes (Death, Other)
  Sender: FDA-Public Use
  Company Number: DE-SA-2017SA124099

PATIENT
  Age: 6 Year

DRUGS (2)
  1. DOXYLAMINE SUCCINATE. [Suspect]
     Active Substance: DOXYLAMINE SUCCINATE
     Indication: PRODUCT USED FOR UNKNOWN INDICATION
     Dosage: UNK UNK,UNK
     Route: 065
  2. HELIUM. [Suspect]
     Active Substance: HELIUM
     Dosage: UNK UNK, UNK
     Route: 065

REACTIONS (2)
  - Asphyxia [Fatal]
  - Sedation [Fatal]
